FAERS Safety Report 25244661 (Version 1)
Quarter: 2025Q2

REPORT INFORMATION
  Report Type: Spontaneous
  Country: CN (occurrence: CN)
  Receive Date: 20250428
  Receipt Date: 20250428
  Transmission Date: 20250717
  Serious: Yes (Hospitalization)
  Sender: GE HEALTHCARE
  Company Number: CN-GE HEALTHCARE-2025CSU005105

PATIENT
  Age: 39 Year
  Sex: Female

DRUGS (2)
  1. OMNIPAQUE [Suspect]
     Active Substance: IOHEXOL
     Indication: Cavagram
     Route: 042
     Dates: start: 20250416, end: 20250416
  2. OMNIPAQUE [Suspect]
     Active Substance: IOHEXOL
     Indication: Vena cava filter removal

REACTIONS (11)
  - Meningitis tuberculous [Recovering/Resolving]
  - Abdominal infection [Recovering/Resolving]
  - Metabolic disorder [Recovered/Resolved]
  - Coma [Recovered/Resolved]
  - Epilepsy [Recovered/Resolved]
  - Anuria [Recovered/Resolved]
  - Toxic encephalopathy [Recovering/Resolving]
  - Heart rate increased [Recovered/Resolved]
  - Hypertension [Recovered/Resolved]
  - Respiratory rate increased [Recovered/Resolved]
  - Pyrexia [Recovered/Resolved]

NARRATIVE: CASE EVENT DATE: 20250416
